FAERS Safety Report 9961463 (Version 1)
Quarter: 2014Q1

REPORT INFORMATION
  Report Type: Spontaneous
  Country: US (occurrence: None)
  Receive Date: 20140304
  Receipt Date: 20140304
  Transmission Date: 20141002
  Serious: Yes (Other)
  Sender: FDA-Public Use
  Company Number: None

PATIENT
  Age: 60 Year
  Sex: Female

DRUGS (11)
  1. PROLIA [Suspect]
     Indication: OSTEOPOROSIS
     Route: 058
     Dates: start: 20140220
  2. RAMAPRIL [Concomitant]
  3. ASPIRIN [Concomitant]
  4. PRAVASTATIN [Concomitant]
  5. PLAVIX [Concomitant]
  6. METOPROLOL TARTRATE [Concomitant]
  7. CENTRUM VITAMIN [Concomitant]
  8. PLAQUENIL [Concomitant]
  9. PREDNISONE [Concomitant]
  10. PROTONIX [Concomitant]
  11. CITRACEL D [Concomitant]

REACTIONS (1)
  - Blood pressure increased [None]
